FAERS Safety Report 23180877 (Version 14)
Quarter: 2025Q2

REPORT INFORMATION
  Report Type: Report from Study
  Country: CA (occurrence: CA)
  Receive Date: 20231114
  Receipt Date: 20250421
  Transmission Date: 20250716
  Serious: Yes (Hospitalization, Other)
  Sender: TAKEDA
  Company Number: CA-TAKEDA-2023TUS108826

PATIENT
  Sex: Female

DRUGS (6)
  1. VEDOLIZUMAB [Suspect]
     Active Substance: VEDOLIZUMAB
     Indication: Colitis ulcerative
  2. VEDOLIZUMAB [Suspect]
     Active Substance: VEDOLIZUMAB
     Indication: Colitis ulcerative
     Dosage: 108 MILLIGRAM, Q2WEEKS
     Dates: start: 20231026
  3. VEDOLIZUMAB [Suspect]
     Active Substance: VEDOLIZUMAB
     Dosage: 108 MILLIGRAM, 1/WEEK
     Dates: start: 2024
  4. IMOVANE [Concomitant]
     Active Substance: ZOPICLONE
  5. CITALOPRAM [Concomitant]
     Active Substance: CITALOPRAM
  6. CALCIUM\VITAMIN D [Concomitant]
     Active Substance: CALCIUM\VITAMIN D

REACTIONS (15)
  - Colitis ulcerative [Recovered/Resolved]
  - Intestinal haemorrhage [Recovering/Resolving]
  - Urethral discharge [Not Recovered/Not Resolved]
  - Diverticulitis [Not Recovered/Not Resolved]
  - Enterovesical fistula [Not Recovered/Not Resolved]
  - Abscess intestinal [Not Recovered/Not Resolved]
  - Haematochezia [Unknown]
  - Bladder pain [Unknown]
  - Rectal haemorrhage [Unknown]
  - Pollakiuria [Unknown]
  - Treatment failure [Unknown]
  - Pain [Unknown]
  - Frequent bowel movements [Unknown]
  - Urinary tract infection [Unknown]
  - Nasopharyngitis [Not Recovered/Not Resolved]
